FAERS Safety Report 4515739-7 (Version None)
Quarter: 2004Q4

REPORT INFORMATION
  Report Type: 
  Country: None (occurrence: None)
  Receive Date: 20041122
  Receipt Date: 20041104
  Transmission Date: 20050328
  Serious: Yes (Hospitalization)
  Sender: FDA-Public Use
  Company Number: 601624

PATIENT
  Age: 84 Year
  Sex: Male
  Weight: 97.977 kg

DRUGS (4)
  1. TISSEEL VH KIT [Suspect]
     Indication: KNEE ARTHROPLASTY
     Dosage: 5 CC; ONCE, INTRACAVITY
     Dates: start: 20040331, end: 20040331
  2. GLUCOSAMINE [Concomitant]
  3. FLOMAX ^CSL^ [Concomitant]
  4. METAMYCIN ^SEARLE^ [Concomitant]

REACTIONS (4)
  - ARTHROFIBROSIS [None]
  - PITTING OEDEMA [None]
  - POST PROCEDURAL COMPLICATION [None]
  - SKIN DISORDER [None]
